FAERS Safety Report 10722283 (Version 10)
Quarter: 2016Q4

REPORT INFORMATION
  Report Type: Spontaneous
  Country: US (occurrence: US)
  Receive Date: 20150119
  Receipt Date: 20161003
  Transmission Date: 20170206
  Serious: Yes (Life-Threatening, Hospitalization, Other)
  Sender: FDA-Public Use
  Company Number: US-GLAXOSMITHKLINE-US2014GSK047467

PATIENT
  Age: 61 Year
  Sex: Female

DRUGS (2)
  1. IMITREX [Suspect]
     Active Substance: SUMATRIPTAN SUCCINATE
     Indication: MIGRAINE
     Dosage: 100 MG, U
     Route: 065
     Dates: start: 1997
  2. IMITREX [Suspect]
     Active Substance: SUMATRIPTAN SUCCINATE
     Indication: HEADACHE
     Dosage: 100 MG, U
     Route: 065
     Dates: start: 20090330

REACTIONS (15)
  - Migraine [Unknown]
  - Chest discomfort [Unknown]
  - Sepsis [Unknown]
  - Malaise [Unknown]
  - Loss of consciousness [Recovered/Resolved]
  - Arthritis [Unknown]
  - Lipoma [Unknown]
  - Arthropathy [Unknown]
  - Coma [Recovered/Resolved]
  - Meningitis [Unknown]
  - Cystitis [Unknown]
  - Poisoning [Unknown]
  - Incontinence [Unknown]
  - Overweight [Unknown]
  - Infection [Unknown]

NARRATIVE: CASE EVENT DATE: 20150723
